FAERS Safety Report 18623201 (Version 3)
Quarter: 2021Q1

REPORT INFORMATION
  Report Type: Spontaneous
  Country: US (occurrence: US)
  Receive Date: 20201216
  Receipt Date: 20210211
  Transmission Date: 20210419
  Serious: No
  Sender: FDA-Public Use
  Company Number: US-B.I. PHARMACEUTICALS,INC./RIDGEFIELD-2020-BI-069057

PATIENT
  Age: 75 Year
  Sex: Female

DRUGS (2)
  1. PROAIR [FLUTICASONE PROPIONATE] [Concomitant]
     Active Substance: FLUTICASONE PROPIONATE
     Indication: ASTHMA
     Dosage: PRN
  2. SPIRIVA RESPIMAT [Suspect]
     Active Substance: TIOTROPIUM BROMIDE
     Indication: ASTHMA
     Dosage: 1.25MCG 1 INHALATION TWO TIMES DAILY
     Route: 055
     Dates: start: 202011

REACTIONS (2)
  - Choking [Not Recovered/Not Resolved]
  - Drug delivery system issue [Unknown]

NARRATIVE: CASE EVENT DATE: 2020
